FAERS Safety Report 10935687 (Version 2)
Quarter: 2015Q3

REPORT INFORMATION
  Report Type: Spontaneous
  Country: US (occurrence: US)
  Receive Date: 20150320
  Receipt Date: 20150701
  Transmission Date: 20151125
  Serious: No
  Sender: FDA-Public Use
  Company Number: US-PFIZER INC-2015094189

PATIENT
  Age: 71 Year
  Sex: Female
  Weight: 80 kg

DRUGS (6)
  1. NATURE-THROID [Concomitant]
     Active Substance: THYROID, PORCINE
     Dosage: 81.5 MG, 1X/DAY
     Dates: start: 2010
  2. ARMOUR THYROID [Concomitant]
     Active Substance: THYROID, PORCINE\THYROID, UNSPECIFIED
     Dosage: UNK
     Dates: start: 2010
  3. LEVOXYL [Suspect]
     Active Substance: LEVOTHYROXINE SODIUM
     Dosage: 75 MG, 1X/DAY
     Dates: end: 2007
  4. BUPROPION HCL [Concomitant]
     Active Substance: BUPROPION HYDROCHLORIDE
     Indication: DEPRESSION
     Dosage: 300 MG, UNK
     Dates: start: 2011
  5. LEVOXYL [Suspect]
     Active Substance: LEVOTHYROXINE SODIUM
     Indication: AUTOIMMUNE THYROIDITIS
     Dosage: 137 MG, UNK
  6. CLONAZEPAM. [Concomitant]
     Active Substance: CLONAZEPAM
     Indication: SEDATIVE THERAPY
     Dosage: 2 DF (OF 0.5MG), DAILY
     Dates: start: 2011

REACTIONS (9)
  - Hypersensitivity [Recovered/Resolved]
  - Blood thyroid stimulating hormone abnormal [Unknown]
  - Weight increased [Unknown]
  - Insomnia [Unknown]
  - Depression [Unknown]
  - Asthenia [Unknown]
  - Hyperhidrosis [Not Recovered/Not Resolved]
  - Lethargy [Unknown]
  - Alopecia [Unknown]

NARRATIVE: CASE EVENT DATE: 2006
